FAERS Safety Report 10411320 (Version 1)
Quarter: 2014Q3

REPORT INFORMATION
  Report Type: Spontaneous
  Country: IN (occurrence: IN)
  Receive Date: 20140826
  Receipt Date: 20140826
  Transmission Date: 20150326
  Serious: Yes (Other)
  Sender: FDA-Public Use
  Company Number: IN-BAUSCH-BL-2014-003944

PATIENT
  Age: 37 Year
  Sex: Male

DRUGS (1)
  1. OFLOXACIN. [Suspect]
     Active Substance: OFLOXACIN
     Indication: PYREXIA
     Route: 048

REACTIONS (2)
  - Drug eruption [Recovering/Resolving]
  - Skin hyperpigmentation [Recovering/Resolving]
